FAERS Safety Report 4315329-5 (Version None)
Quarter: 2004Q1

REPORT INFORMATION
  Report Type: 
  Country: None (occurrence: None)
  Receive Date: 20040310
  Receipt Date: 20040310
  Transmission Date: 20041129
  Serious: Yes (Disabling)
  Sender: FDA-Public Use
  Company Number: None

PATIENT
  Age: 66 Year
  Sex: Female
  Weight: 61.2356 kg

DRUGS (2)
  1. ZICAM [Suspect]
     Indication: NASOPHARYNGITIS
     Dosage: NASAL SPRAY AT NIGHT FOUR NIGHTS
     Route: 045
     Dates: start: 20040207, end: 20040210
  2. ZICAM [Suspect]
     Indication: RESPIRATORY DISORDER
     Dosage: NASAL SPRAY AT NIGHT FOUR NIGHTS
     Route: 045
     Dates: start: 20040207, end: 20040210

REACTIONS (2)
  - AGEUSIA [None]
  - ANOSMIA [None]
